FAERS Safety Report 19673740 (Version 1)
Quarter: 2021Q3

REPORT INFORMATION
  Report Type: Spontaneous
  Country: US (occurrence: US)
  Receive Date: 20210809
  Receipt Date: 20210809
  Transmission Date: 20211014
  Serious: Yes (Other)
  Sender: FDA-Public Use
  Company Number: US-ACCORD-166490

PATIENT
  Age: 39 Year
  Sex: Female
  Weight: 113.4 kg

DRUGS (2)
  1. DOCETAXEL ACCORD [Suspect]
     Active Substance: DOCETAXEL
     Indication: BREAST CANCER
     Dosage: ONCE
     Dates: start: 20171030, end: 20171030
  2. NEOSAR [Suspect]
     Active Substance: CYCLOPHOSPHAMIDE
     Indication: BREAST CANCER
     Dosage: ONCE
     Dates: start: 20171030, end: 20171030

REACTIONS (1)
  - Alopecia [Not Recovered/Not Resolved]
